FAERS Safety Report 9121053 (Version 2)
Quarter: 2013Q1

REPORT INFORMATION
  Report Type: Spontaneous
  Country: TW (occurrence: TW)
  Receive Date: 20130226
  Receipt Date: 20130311
  Transmission Date: 20140127
  Serious: Yes (Hospitalization)
  Sender: FDA-Public Use
  Company Number: TW-ABBOTT-13P-153-1055265-00

PATIENT
  Age: 32 Year
  Sex: Female

DRUGS (3)
  1. VALPROIC ACID [Suspect]
     Indication: EPILEPSY
     Dosage: 400 MILLIGRAM(S); DAILY
     Route: 065
  2. LAMITROGINE [Suspect]
     Indication: EPILEPSY
     Dosage: 20 MILLIGRAM(S); DAILY
     Route: 065
  3. LAMITROGINE [Suspect]
     Dosage: 100 MILLIGRAM(S); DAILY
     Route: 065

REACTIONS (14)
  - Drug reaction with eosinophilia and systemic symptoms [Recovering/Resolving]
  - Drug interaction [Unknown]
  - Pyrexia [Unknown]
  - Generalised erythema [Unknown]
  - Jaundice [Unknown]
  - Aspartate aminotransferase increased [Unknown]
  - Alanine aminotransferase increased [Unknown]
  - Blood bilirubin increased [Unknown]
  - Blood lactate dehydrogenase increased [Unknown]
  - Blood alkaline phosphatase increased [Unknown]
  - Gamma-glutamyltransferase increased [Unknown]
  - Rash generalised [Unknown]
  - Biopsy skin abnormal [Unknown]
  - Rash maculo-papular [Unknown]
